FAERS Safety Report 7913331-5 (Version None)
Quarter: 2011Q4

REPORT INFORMATION
  Report Type: 
  Country: None (occurrence: None)
  Receive Date: 20111114
  Receipt Date: 20111103
  Transmission Date: 20120403
  Serious: Yes (Other)
  Sender: FDA-Public Use
  Company Number: US-ASTRAZENECA-2011SE59958

PATIENT
  Age: 43 Year
  Sex: Female

DRUGS (35)
  1. PRILOSEC [Suspect]
     Route: 048
  2. XOPENEX [Concomitant]
     Indication: COUGH
     Dosage: 12.5 MG/3 ML INHALE ONE PUFF AS DIRECTED THREE TIMES A DAY
     Route: 055
  3. XOPENEX [Concomitant]
     Dosage: 45 MCG/ACTUATION AEROSOL INHALER INHALE 2 PUFF TWO TIMES A DAY
     Route: 055
  4. CLONAZEPAM [Concomitant]
     Route: 048
  5. TOPAMAX [Concomitant]
     Route: 048
  6. MOMETASONE FUROATE [Concomitant]
     Dosage: 2 PUFF INTO EACH NOSTRILS TWO TIMES A DAY
     Route: 045
  7. SEROQUEL [Suspect]
     Route: 048
  8. HYDROCHLOROTHIAZIDE [Concomitant]
     Dosage: 1/2 TO 1 DAILY
     Route: 048
  9. LEVSIN [Concomitant]
     Indication: PAIN
     Dosage: 1-2 TABLET EVERY 6 HOURS AS NEEDED
     Route: 060
  10. ATROVENT [Concomitant]
     Dosage: 2 PUFFS 2 TIMES A DAY PRN
     Route: 045
  11. SPIRIVA WITH HANDIHALER [Concomitant]
     Dosage: INHALE 1 PUFF CAP W/INHALATION DEVICE DAILY
  12. XOPENEX [Concomitant]
     Dosage: 45 MCG/ACTUATION AEROSOL INHALER INHALE 2 PUFF TWO TIMES A DAY
     Route: 055
  13. QVAR 40 [Concomitant]
     Dosage: INHALE 2 PUFFS TWO TIME A DAY
     Route: 055
  14. DESENEX JOCK ITCH [Concomitant]
     Dosage: APPLY TO SKIN
     Route: 061
  15. NORTRIPTYLINE HCL [Concomitant]
     Route: 048
  16. COUMADIN [Concomitant]
     Dosage: AS DIR BY ANTOCOAG CLINIC
     Route: 048
  17. PREDNISONE [Concomitant]
     Route: 048
  18. MAGTAB [Concomitant]
     Route: 048
  19. NEXIUM [Suspect]
     Route: 048
  20. TESSALON [Concomitant]
     Route: 048
  21. PULMICORT FLEXHALER [Suspect]
     Dosage: 180 MCG TWO PUFFS TWICE A DAY
     Route: 055
  22. MAGNESIUM HYDROXIDE TAB [Concomitant]
     Dosage: ONE IN AM AFTER PREDNISONE. ONE IN PM IF NEEDED
     Route: 048
  23. CLEMASTINE FUMARATE [Concomitant]
     Dosage: 1.5 TABLET 2 TIMES A DAY PER HOME DOSING
     Route: 048
  24. METFORMIN HCL [Concomitant]
     Dosage: 500 DAILY
     Route: 048
  25. MIRALAX [Concomitant]
     Dosage: 3350 17 GRAM/DOSE 1 TSF 2 TIMES A DAY
     Route: 048
  26. XOPENEX [Concomitant]
     Indication: DYSPNOEA
     Dosage: 12.5 MG/3 ML INHALE ONE PUFF AS DIRECTED THREE TIMES A DAY
     Route: 055
  27. XOPENEX [Concomitant]
     Indication: WHEEZING
     Dosage: 12.5 MG/3 ML INHALE ONE PUFF AS DIRECTED THREE TIMES A DAY
     Route: 055
  28. XOPENEX [Concomitant]
     Dosage: 45 MCG/ACTUATION AEROSOL INHALER INHALE 2 PUFF TWO TIMES A DAY
     Route: 055
  29. CINNAMON [Concomitant]
     Route: 048
  30. COUMADIN [Concomitant]
     Route: 048
  31. VITAMIN D [Concomitant]
     Dosage: 1000 UNIT DAILY
     Route: 048
  32. CODEINE SUL TAB [Concomitant]
     Dosage: 30 MG EVERY SIX HOURS AS NEEDED
     Route: 048
  33. MORPHINE [Concomitant]
     Indication: PAIN
     Dosage: 15 MG EVERY 6 TO 8 HOURS AS NEEDED
     Route: 048
  34. SODIUM CHLORIDE NASI [Concomitant]
     Dosage: 1 SPRAY EVERY 8 HOURS
     Route: 045
  35. IRON [Concomitant]
     Route: 048

REACTIONS (14)
  - ASPIRATION [None]
  - MULTIPLE ALLERGIES [None]
  - GASTROOESOPHAGEAL REFLUX DISEASE [None]
  - ASTHMA [None]
  - INAPPROPRIATE SCHEDULE OF DRUG ADMINISTRATION [None]
  - POLYCYSTIC OVARIES [None]
  - OBESITY [None]
  - DRUG DOSE OMISSION [None]
  - HEADACHE [None]
  - MIGRAINE [None]
  - OEDEMA [None]
  - DRUG INTOLERANCE [None]
  - ABDOMINAL DISCOMFORT [None]
  - BIPOLAR DISORDER [None]
